FAERS Safety Report 9494677 (Version 2)
Quarter: 2013Q3

REPORT INFORMATION
  Report Type: Spontaneous
  Country: FR (occurrence: FR)
  Receive Date: 20130903
  Receipt Date: 20130903
  Transmission Date: 20140515
  Serious: Yes (Life-Threatening, Hospitalization)
  Sender: FDA-Public Use
  Company Number: FR-009507513-1008FRA00010

PATIENT
  Age: 59 Year
  Sex: Male
  Weight: 101 kg

DRUGS (5)
  1. JANUMET [Suspect]
     Indication: TYPE 2 DIABETES MELLITUS
     Dosage: 2 DF, BID
     Route: 048
     Dates: start: 201007
  2. JANUVIA [Suspect]
     Indication: TYPE 2 DIABETES MELLITUS
     Dosage: 100 MG, QD
     Route: 048
     Dates: start: 20100510, end: 20100512
  3. ATACAND [Concomitant]
     Indication: HYPERTENSION
     Dosage: 1 DF, QD
  4. BISOPROLOL [Concomitant]
     Indication: HYPERTENSION
     Dosage: 1 DF, QD
  5. LIPANTHYL [Concomitant]
     Indication: DYSLIPIDAEMIA
     Dosage: 1 DF, QD

REACTIONS (4)
  - Diabetes mellitus [Recovered/Resolved]
  - Tooth abscess [Recovered/Resolved]
  - Nausea [Recovered/Resolved]
  - Arthralgia [Recovered/Resolved]
